FAERS Safety Report 7409152-2 (Version None)
Quarter: 2011Q2

REPORT INFORMATION
  Report Type: 
  Country: None (occurrence: None)
  Receive Date: 20110412
  Receipt Date: 20110406
  Transmission Date: 20111010
  Serious: Yes (Disabling, Congenital Anomaly)
  Sender: FDA-Public Use
  Company Number: US-ROCHE-766920

PATIENT
  Sex: Female

DRUGS (1)
  1. OSELTAMIVIR [Suspect]
     Indication: H1N1 INFLUENZA
     Route: 064
     Dates: start: 20091103, end: 20091108

REACTIONS (2)
  - VENTRICULAR SEPTAL DEFECT [None]
  - HYPOTONIA [None]
